FAERS Safety Report 9323421 (Version 1)
Quarter: 2013Q2

REPORT INFORMATION
  Report Type: Spontaneous
  Country: US (occurrence: US)
  Receive Date: 20130603
  Receipt Date: 20130603
  Transmission Date: 20140414
  Serious: No
  Sender: FDA-Public Use
  Company Number: US-PFIZER INC-2013167041

PATIENT
  Sex: Female
  Weight: 114 kg

DRUGS (6)
  1. LYRICA [Suspect]
     Indication: FIBROMYALGIA
     Dosage: 25 MG, 3X/DAY
     Dates: start: 2012
  2. LYRICA [Suspect]
     Indication: NEURALGIA
  3. LYRICA [Suspect]
     Indication: NERVE INJURY
  4. VESICARE [Concomitant]
     Indication: BLADDER SPASM
     Dosage: 5 MG, 1X/DAY
  5. EFFEXOR [Concomitant]
     Indication: ANXIETY
     Dosage: 25 MG, 1X/DAY
  6. ESTRADIOL [Concomitant]
     Indication: HYSTERECTOMY
     Dosage: 0.5 MG, 1X/DAY

REACTIONS (3)
  - Somnolence [Not Recovered/Not Resolved]
  - Weight increased [Not Recovered/Not Resolved]
  - Dry mouth [Not Recovered/Not Resolved]
